FAERS Safety Report 8024999-X (Version None)
Quarter: 2011Q4

REPORT INFORMATION
  Report Type: 
  Country: None (occurrence: None)
  Receive Date: 20111130
  Receipt Date: 20110405
  Transmission Date: 20120403
  Serious: Yes (Other)
  Sender: FDA-Public Use
  Company Number: 314070

PATIENT
  Age: 61 Year
  Sex: Female

DRUGS (13)
  1. NOVOLOG [Suspect]
     Indication: TYPE 2 DIABETES MELLITUS
     Dosage: 3-5 U, BEFORE EACH MEAL, SUBCUTANEOUS
     Route: 058
     Dates: start: 20050101
  2. PREVACID [Concomitant]
  3. THYROID TAB [Concomitant]
  4. LASIX [Concomitant]
  5. GLUCOPHAGE [Concomitant]
  6. FUROSEMIDE [Concomitant]
  7. KLOR-CON [Concomitant]
  8. ZETIA [Concomitant]
  9. LISINOPRIL [Concomitant]
  10. ZYRTEC [Concomitant]
  11. MELOXICAM [Concomitant]
  12. GLIMEPIRIDE [Concomitant]
  13. DOXEPIN HCL [Concomitant]

REACTIONS (4)
  - HYPERTENSION [None]
  - URTICARIA [None]
  - INCORRECT STORAGE OF DRUG [None]
  - VIRAL INFECTION [None]
